FAERS Safety Report 26141210 (Version 1)
Quarter: 2025Q4

REPORT INFORMATION
  Report Type: Spontaneous
  Country: US (occurrence: None)
  Receive Date: 20251210
  Receipt Date: 20251210
  Transmission Date: 20260118
  Serious: Yes (Hospitalization, Other)
  Sender: UCB
  Company Number: US-UCBSA-2025077134

PATIENT
  Weight: 136.05 kg

DRUGS (1)
  1. BIMZELX [Suspect]
     Active Substance: BIMEKIZUMAB-BKZX
     Indication: Hidradenitis
     Dosage: 320 MILLIGRAM, EV 2 WEEKS(QOW)

REACTIONS (5)
  - Hidradenitis [Unknown]
  - Skin graft [Unknown]
  - Debridement [Unknown]
  - Product availability issue [Unknown]
  - Therapy interrupted [Unknown]
